FAERS Safety Report 10689291 (Version 1)
Quarter: 2015Q1

REPORT INFORMATION
  Report Type: Spontaneous
  Country: US (occurrence: None)
  Receive Date: 20150102
  Receipt Date: 20150102
  Transmission Date: 20150720
  Serious: Yes (Life-Threatening)
  Sender: FDA-Public Use
  Company Number: None

PATIENT
  Age: 80 Year
  Sex: Male
  Weight: 95 kg

DRUGS (1)
  1. PLASMA PROTEIN FRACTION [Suspect]
     Active Substance: PLASMA PROTEIN FRACTION (HUMAN)
     Indication: HYPOVOLAEMIA
     Dates: start: 20141203, end: 20141203

REACTIONS (3)
  - Anaphylactic reaction [None]
  - Confusional state [None]
  - Procedural complication [None]

NARRATIVE: CASE EVENT DATE: 20141203
